FAERS Safety Report 9758549 (Version 1)
Quarter: 2013Q4

REPORT INFORMATION
  Report Type: Spontaneous
  Country: US (occurrence: None)
  Receive Date: 20131216
  Receipt Date: 20131216
  Transmission Date: 20140711
  Serious: No
  Sender: FDA-Public Use
  Company Number: CABO-13002454

PATIENT
  Age: 41 Year
  Sex: Female

DRUGS (1)
  1. COMETRIQ (CABOZANTINIB) CAPSULE [Suspect]
     Indication: THYROID CANCER
     Dosage: 140 MG, QD, ORAL?140 MG. QD, ORAL

REACTIONS (9)
  - Influenza like illness [None]
  - Pain of skin [None]
  - Acne [None]
  - Myalgia [None]
  - Pyrexia [None]
  - Dry skin [None]
  - Asthenia [None]
  - Diarrhoea [None]
  - Diarrhoea haemorrhagic [None]
